FAERS Safety Report 10039800 (Version 1)
Quarter: 2014Q1

REPORT INFORMATION
  Report Type: Report from Study
  Country: US (occurrence: US)
  Receive Date: 20140326
  Receipt Date: 20140326
  Transmission Date: 20141002
  Serious: Yes (Other)
  Sender: FDA-Public Use
  Company Number: US-JNJFOC-20140311191

PATIENT
  Age: 63 Year
  Sex: Female
  Weight: 89.36 kg

DRUGS (10)
  1. SIMPONI [Suspect]
     Indication: RHEUMATOID ARTHRITIS
     Route: 058
     Dates: start: 2010
  2. METOPROLOL [Suspect]
     Indication: ATRIAL FIBRILLATION
     Route: 065
  3. METOPROLOL [Suspect]
     Indication: ATRIAL FIBRILLATION
     Route: 065
     Dates: start: 201403
  4. SIMVASTATIN [Concomitant]
     Indication: BLOOD CHOLESTEROL
     Route: 048
  5. LISINOPRIL [Concomitant]
     Route: 048
  6. FOLIC ACID [Concomitant]
     Indication: RHEUMATOID ARTHRITIS
     Route: 048
  7. BUPROPION [Concomitant]
     Indication: ANTIDEPRESSANT THERAPY
     Route: 048
  8. FLUOXETINE [Concomitant]
     Dosage: 60MG/TABLET/20MG/ONCE DAY/ORAL
     Route: 048
  9. MORPHINE [Concomitant]
     Route: 048
  10. TAFLUPROST [Concomitant]
     Route: 047

REACTIONS (2)
  - Atrial fibrillation [Not Recovered/Not Resolved]
  - Heart rate decreased [Not Recovered/Not Resolved]
